FAERS Safety Report 8544877-7 (Version None)
Quarter: 2012Q3

REPORT INFORMATION
  Report Type: 
  Country: None (occurrence: None)
  Receive Date: 20120727
  Receipt Date: 20120719
  Transmission Date: 20120928
  Serious: Yes (Other)
  Sender: FDA-Public Use
  Company Number: JP-ROCHE-1090418

PATIENT
  Age: 65 Year
  Sex: Male

DRUGS (3)
  1. CLONAZEPAM [Suspect]
     Indication: RESTLESS LEGS SYNDROME
     Dosage: DOSAGE IS UNCERTAIN.
     Route: 048
  2. CLONAZEPAM [Suspect]
     Dosage: ONCE
     Route: 048
     Dates: start: 20120701, end: 20120701
  3. BASEN [Concomitant]
     Indication: DIABETES MELLITUS
     Dosage: DOSAGE IS UNCERTAIN.
     Route: 048

REACTIONS (2)
  - ACIDOSIS [None]
  - ALTERED STATE OF CONSCIOUSNESS [None]
